FAERS Safety Report 23224808 (Version 1)
Quarter: 2023Q4

REPORT INFORMATION
  Report Type: Other
  Country: US (occurrence: US)
  Receive Date: 20231124
  Receipt Date: 20231124
  Transmission Date: 20240109
  Serious: Yes (Other)
  Sender: FDA-Public Use
  Company Number: US-Bion-012371

PATIENT
  Age: 29 Year
  Sex: Female

DRUGS (2)
  1. CALCITRIOL [Suspect]
     Active Substance: CALCITRIOL
     Indication: Hypocalcaemia
  2. CALCIUM [Concomitant]
     Active Substance: CALCIUM
     Indication: Hypocalcaemia

REACTIONS (2)
  - Posterior reversible encephalopathy syndrome [Unknown]
  - Hypercalcaemia [Unknown]
